FAERS Safety Report 8456748 (Version 2)
Quarter: 2014Q1

REPORT INFORMATION
  Report Type: Spontaneous
  Country: US (occurrence: None)
  Receive Date: 20120221
  Receipt Date: 20131120
  Transmission Date: 20141002
  Serious: No
  Sender: FDA-Public Use
  Company Number: 1000026440

PATIENT
  Age: 56 Year
  Sex: Female

DRUGS (4)
  1. VIIBRYD [Suspect]
     Indication: DEPRESSION
     Route: 048
     Dates: start: 201111, end: 201111
  2. VIDODIN (HYDROCODONE, ACETAMINOPHEN) (HYDROCODONE, ACETAMINOPHEN) [Concomitant]
  3. SOMA (CARISOPRODOL) (CARISOPRODOL) [Concomitant]
  4. VIIBRYD (VILAZODONE) (10 MILLIGRAM, TABLETS) [Suspect]
     Indication: DEPRESSION
     Route: 048
     Dates: start: 201308, end: 201308

REACTIONS (8)
  - Insomnia [None]
  - Tremor [None]
  - Telangiectasia [None]
  - Palpitations [None]
  - Heart rate increased [None]
  - Decreased appetite [None]
  - Night sweats [None]
  - Petechiae [None]
